FAERS Safety Report 9203127 (Version 2)
Quarter: 2013Q2

REPORT INFORMATION
  Report Type: Spontaneous
  Country: US (occurrence: None)
  Receive Date: 20130329
  Receipt Date: 20130408
  Transmission Date: 20140414
  Serious: Yes (Hospitalization, Other)
  Sender: FDA-Public Use
  Company Number: AUR-APL-2013-02609

PATIENT
  Age: 79 Year
  Sex: Female

DRUGS (5)
  1. MIRTAZAPINE [Suspect]
     Indication: MAJOR DEPRESSION
     Dosage: 30MG 1D, UNKNOWN
  2. MIRTAZAPINE [Suspect]
     Indication: ANXIETY
     Dosage: 30MG 1D, UNKNOWN
  3. DONEPEZIL [Suspect]
     Indication: MAJOR DEPRESSION
  4. DONEPEZIL [Suspect]
     Indication: ANXIETY
  5. ESZOPICLONE [Concomitant]
     Indication: DEPRESSION

REACTIONS (9)
  - Encephalopathy [None]
  - Acute psychosis [None]
  - Depression [None]
  - Anxiety [None]
  - Confusional state [None]
  - Incoherent [None]
  - Delusion [None]
  - Electroencephalogram abnormal [None]
  - Agitation [None]
